FAERS Safety Report 12958601 (Version 1)
Quarter: 2016Q4

REPORT INFORMATION
  Report Type: Spontaneous
  Country: US (occurrence: US)
  Receive Date: 20161121
  Receipt Date: 20161121
  Transmission Date: 20170207
  Serious: No
  Sender: FDA-Public Use
  Company Number: US-TEVA-678172USA

PATIENT
  Sex: Female
  Weight: 66.74 kg

DRUGS (2)
  1. BUDESONIDE. [Suspect]
     Active Substance: BUDESONIDE
     Indication: CHRONIC OBSTRUCTIVE PULMONARY DISEASE
  2. BUDESONIDE. [Suspect]
     Active Substance: BUDESONIDE
     Indication: CHRONIC OBSTRUCTIVE PULMONARY DISEASE
     Dosage: 0.5 MG/2 ML

REACTIONS (5)
  - Bone pain [Unknown]
  - Product supply issue [Unknown]
  - Product use issue [Unknown]
  - Drug prescribing error [Unknown]
  - Osteoporosis [Unknown]

NARRATIVE: CASE EVENT DATE: 2016
